FAERS Safety Report 10648862 (Version 1)
Quarter: 2014Q4

REPORT INFORMATION
  Report Type: Spontaneous
  Country: FR (occurrence: None)
  Receive Date: 20141210
  Receipt Date: 20141210
  Transmission Date: 20150529
  Serious: Yes (Hospitalization)
  Sender: FDA-Public Use
  Company Number: 2652555

PATIENT
  Age: 76 Year
  Sex: Male

DRUGS (25)
  1. LEVOFLOXACIN. [Suspect]
     Active Substance: LEVOFLOXACIN
     Indication: PNEUMONITIS
     Dates: start: 2014, end: 2014
  2. CERNEVIT [Concomitant]
     Active Substance: VITAMINS
  3. VINCRISTINE SULFATE. [Suspect]
     Active Substance: VINCRISTINE SULFATE
     Indication: ACUTE LYMPHOCYTIC LEUKAEMIA
     Route: 042
     Dates: start: 20140717
  4. IMIPENEM AND CILASTATIN [Suspect]
     Active Substance: CILASTATIN SODIUM\IMIPENEM
     Indication: PNEUMONITIS
     Dosage: 1 G GRAM(S), 3 DAY
     Route: 048
  5. GENTAMICINE PANPHARMA [Suspect]
     Active Substance: GENTAMICIN
     Indication: PNEUMONITIS
     Dosage: 180 G GRAM(S), 1 DAY
     Route: 048
     Dates: start: 20140819, end: 201408
  6. DEXAMETHASONE. [Suspect]
     Active Substance: DEXAMETHASONE
     Indication: ACUTE LYMPHOCYTIC LEUKAEMIA
     Route: 048
     Dates: start: 20140717
  7. LASILIX [Concomitant]
     Active Substance: FUROSEMIDE
  8. KARDEGIC [Concomitant]
     Active Substance: ASPIRIN LYSINE
  9. SMECTA [Concomitant]
     Active Substance: MONTMORILLONITE
  10. PHOSPHONEUROS [Concomitant]
     Active Substance: CALCIUM PHOSPHATE, DIBASIC, ANHYDROUS\MAGNESIUM GLYCEROPHOSPHATE\PHOSPHORIC ACID\SODIUM PHOSPHATE, DIBASIC
  11. NONAN [Concomitant]
  12. DEPO-MEDROL [Suspect]
     Active Substance: METHYLPREDNISOLONE ACETATE
     Indication: ACUTE LYMPHOCYTIC LEUKAEMIA
     Route: 037
     Dates: start: 20140717
  13. AMLOR [Concomitant]
     Active Substance: AMLODIPINE BESYLATE
  14. FLAGYL [Concomitant]
     Active Substance: METRONIDAZOLE\METRONIDAZOLE HYDROCHLORIDE
  15. GRANOCYTE [Concomitant]
     Active Substance: LENOGRASTIM
  16. GLIVEC [Suspect]
     Active Substance: IMATINIB MESYLATE
     Indication: ACUTE LYMPHOCYTIC LEUKAEMIA
     Dosage: 1 DF DOSAGE FORM (1 DAY)
     Route: 048
     Dates: start: 20140717
  17. TIAPRIDAL [Concomitant]
     Active Substance: TIAPRIDE HYDROCHLORIDE
  18. DEPAMIDE [Concomitant]
     Active Substance: VALPROMIDE
  19. DEXTROSE. [Concomitant]
     Active Substance: DEXTROSE
  20. METHOTREXATE [Suspect]
     Active Substance: METHOTREXATE
     Indication: ACUTE LYMPHOCYTIC LEUKAEMIA
     Route: 037
     Dates: start: 20140717
  21. CEFTAZIDIME. [Concomitant]
     Active Substance: CEFTAZIDIME
  22. ZELITREX [Suspect]
     Active Substance: VALACYCLOVIR HYDROCHLORIDE
     Indication: PNEUMONITIS
     Route: 048
     Dates: start: 20140819
  23. CYTARABINE. [Suspect]
     Active Substance: CYTARABINE
     Indication: ACUTE LYMPHOCYTIC LEUKAEMIA
     Route: 037
     Dates: start: 20140725
  24. CEFTRIAXONE PANPHARMA [Suspect]
     Active Substance: CEFTRIAXONE
     Indication: PNEUMONITIS
     Dates: start: 2014, end: 2014
  25. TRIATEC [Concomitant]
     Active Substance: RAMIPRIL

REACTIONS (12)
  - Mucosal inflammation [None]
  - Leukopenia [None]
  - Aggression [None]
  - Thrombocytopenia [None]
  - Anaemia [None]
  - Sleep phase rhythm disturbance [None]
  - Cytopenia [None]
  - Vomiting [None]
  - Nausea [None]
  - Psychomotor hyperactivity [None]
  - Fungal infection [None]
  - Lymphopenia [None]

NARRATIVE: CASE EVENT DATE: 20140718
